FAERS Safety Report 12888458 (Version 4)
Quarter: 2016Q4

REPORT INFORMATION
  Report Type: Report from Study
  Country: US (occurrence: US)
  Receive Date: 20161027
  Receipt Date: 20161213
  Transmission Date: 20170207
  Serious: Yes (Hospitalization)
  Sender: FDA-Public Use
  Company Number: US-ROCHE-1845571

PATIENT
  Age: 44 Year
  Sex: Male
  Weight: 74.1 kg

DRUGS (10)
  1. CYCLOPHOSPHAMIDE. [Suspect]
     Active Substance: CYCLOPHOSPHAMIDE
     Indication: B-CELL LYMPHOMA
     Dosage: DOSE OF LAST CYCLOPHOSPHAMIDE: 1455 MG?DATE OF MOST RECENT DOSE: 30/SEP/2016 AT 13 10
     Route: 042
     Dates: start: 20160614
  2. PREDNISONE. [Suspect]
     Active Substance: PREDNISONE
     Indication: B-CELL LYMPHOMA
     Dosage: DOSE OF LAST PREDNISONE ADMINISTERED:100 MG?DATE OF MOST RECENT DOSE OF PREDNISONE: 04/OCT/2016
     Route: 048
     Dates: start: 20160614
  3. VENETOCLAX [Suspect]
     Active Substance: VENETOCLAX
     Indication: B-CELL LYMPHOMA
     Dosage: DOSE OF LAST GDC-0199 ADMINISTERED: 800 MG?DATE OF MOST RECENT DOSE: 09/OCT/2016
     Route: 048
     Dates: start: 20160617
  4. COLACE [Concomitant]
     Active Substance: DOCUSATE SODIUM
     Indication: CONSTIPATION
     Route: 065
     Dates: start: 20160620
  5. COMPAZINE [Concomitant]
     Active Substance: PROCHLORPERAZINE MALEATE
     Indication: NAUSEA
     Route: 065
     Dates: start: 20160614
  6. LEVAQUIN [Concomitant]
     Active Substance: LEVOFLOXACIN
     Route: 065
     Dates: start: 20160919
  7. SUDAFED (PSEUDOEPHEDRINE HYDROCHLORIDE) [Concomitant]
     Indication: NASAL CONGESTION
     Route: 065
     Dates: start: 20161024
  8. RITUXIMAB [Suspect]
     Active Substance: RITUXIMAB
     Indication: B-CELL LYMPHOMA
     Dosage: DOSE OF LAST RITUXIMAB ADMINISTERED: 728 MG?DATE OF MOST RECENT DOSE: 30/SEP/2016 AT 10 56
     Route: 042
     Dates: start: 20160614
  9. VINCRISTINE [Suspect]
     Active Substance: VINCRISTINE
     Indication: B-CELL LYMPHOMA
     Dosage: DOSE OF LAST VINCRISTINE ADMINISTERED: 2 MG?DATE OF MOST RECENT DOSE OF VINCRISTINE: 30/SEP/2016 AT
     Route: 042
     Dates: start: 20160614
  10. DOXORUBICIN [Suspect]
     Active Substance: DOXORUBICIN
     Indication: B-CELL LYMPHOMA
     Dosage: DOSE OF LAST DOXORUBICIN ADMINISTERED: 97 MG?DATE OF MOST RECENT DOSE OF DOXORUBICIN: 30/SEP/2016 AT
     Route: 042
     Dates: start: 20160614

REACTIONS (1)
  - Pulmonary embolism [Recovered/Resolved]

NARRATIVE: CASE EVENT DATE: 20161021
